FAERS Safety Report 10567977 (Version 2)
Quarter: 2014Q4

REPORT INFORMATION
  Report Type: Spontaneous
  Country: US (occurrence: None)
  Receive Date: 20141104
  Receipt Date: 20141126
  Transmission Date: 20150529
  Serious: Yes (Life-Threatening, Hospitalization)
  Sender: FDA-Public Use
  Company Number: FK201404746

PATIENT
  Sex: Female
  Weight: 65 kg

DRUGS (1)
  1. HEPARIN [Suspect]
     Active Substance: HEPARIN SODIUM
     Indication: DIALYSIS
     Dosage: 3000 USP UNITS, ONCE PRE DIALYSIS, INTRAVENOUS BOLUS
     Route: 040
     Dates: start: 20141006

REACTIONS (6)
  - Unresponsive to stimuli [None]
  - Cardio-respiratory arrest [None]
  - Anxiety [None]
  - Feeling abnormal [None]
  - Flushing [None]
  - Anaphylactic reaction [None]

NARRATIVE: CASE EVENT DATE: 20141006
